FAERS Safety Report 10195942 (Version 2)
Quarter: 2014Q2

REPORT INFORMATION
  Report Type: Spontaneous
  Country: US (occurrence: US)
  Receive Date: 20140527
  Receipt Date: 20140527
  Transmission Date: 20141212
  Serious: Yes (Other)
  Sender: FDA-Public Use
  Company Number: PHHY2014US047272

PATIENT
  Sex: Male

DRUGS (8)
  1. LIORESAL INTRATECAL [Suspect]
     Indication: MUSCLE SPASTICITY
     Dosage: 1060 UG, PER DAY
     Route: 037
     Dates: start: 20100216
  2. LIORESAL INTRATECAL [Suspect]
     Dosage: 100 UG, DOLUS
     Route: 037
  3. LIORESAL INTRATECAL [Suspect]
     Dosage: 950 UG, PER DAY
     Route: 037
  4. LIORESAL INTRATECAL [Suspect]
     Dosage: 1060 UG, PER DAY
     Route: 037
  5. RITALIN [Suspect]
     Dosage: UNK UKN, UNK
     Route: 048
  6. BACLOFEN [Suspect]
     Indication: MUSCLE SPASTICITY
     Dosage: 10 MG, TID
     Route: 048
  7. SYMMETREL [Suspect]
     Dosage: UNK UKN, UNK
     Route: 048
  8. RESTORIL [Suspect]
     Dosage: UNK UKN, UNK
     Route: 048

REACTIONS (6)
  - Drooling [Recovered/Resolved]
  - Tachyphylaxis [Recovered/Resolved]
  - Blood pressure fluctuation [Recovered/Resolved]
  - Cerebrospinal fluid leakage [Recovered/Resolved]
  - No therapeutic response [Recovered/Resolved]
  - Muscle spasticity [Recovered/Resolved]
